FAERS Safety Report 18587095 (Version 2)
Quarter: 2020Q4

REPORT INFORMATION
  Report Type: Spontaneous
  Country: DE (occurrence: DE)
  Receive Date: 20201207
  Receipt Date: 20201222
  Transmission Date: 20210114
  Serious: Yes (Hospitalization)
  Sender: FDA-Public Use
  Company Number: NVSC2020DE319491

PATIENT
  Age: 37 Year
  Sex: Male

DRUGS (6)
  1. XEPLION [Suspect]
     Active Substance: PALIPERIDONE PALMITATE
     Indication: SCHIZOPHRENIA
     Dosage: 75 MG (28D)
     Route: 030
     Dates: start: 2017, end: 20191016
  2. RISPERIDONE. [Suspect]
     Active Substance: RISPERIDONE
     Dosage: 3 MG, UNKNOWN
     Route: 048
     Dates: start: 20191107, end: 20191113
  3. RISPERIDONE. [Suspect]
     Active Substance: RISPERIDONE
     Dosage: 4 MG, UNKNOWN
     Route: 048
     Dates: start: 20191030, end: 20191106
  4. RISPERIDONE. [Suspect]
     Active Substance: RISPERIDONE
     Dosage: 4 MG, QD
     Route: 048
     Dates: start: 20191029, end: 20191113
  5. LORAZEPAM. [Concomitant]
     Active Substance: LORAZEPAM
     Indication: PRODUCT USED FOR UNKNOWN INDICATION
     Dosage: UNK
     Route: 065
  6. RISPERIDONE. [Suspect]
     Active Substance: RISPERIDONE
     Indication: SCHIZOPHRENIA
     Dosage: 3 MG, UNKNOWN
     Route: 048
     Dates: start: 20191029, end: 20191029

REACTIONS (3)
  - Hallucination, auditory [Unknown]
  - Dermatitis allergic [Recovering/Resolving]
  - Alcohol abuse [Unknown]

NARRATIVE: CASE EVENT DATE: 20191029
